FAERS Safety Report 7511648-X (Version None)
Quarter: 2011Q2

REPORT INFORMATION
  Report Type: 
  Country: None (occurrence: None)
  Receive Date: 20110531
  Receipt Date: 20110525
  Transmission Date: 20111010
  Serious: Yes (Other)
  Sender: FDA-Public Use
  Company Number: JP-PFIZER INC-2011113412

PATIENT
  Age: 60 Year
  Sex: Male

DRUGS (1)
  1. LYRICA [Suspect]
     Indication: HYPOAESTHESIA
     Dosage: 150 MG DAILY

REACTIONS (4)
  - SCROTAL OEDEMA [None]
  - OSTEOMYELITIS [None]
  - BLISTER [None]
  - OEDEMA PERIPHERAL [None]
